FAERS Safety Report 9022240 (Version 1)
Quarter: 2013Q1

REPORT INFORMATION
  Report Type: Spontaneous
  Country: CA (occurrence: US)
  Receive Date: 20130118
  Receipt Date: 20130118
  Transmission Date: 20140127
  Serious: Yes (Hospitalization, Other)
  Sender: FDA-Public Use
  Company Number: CA-PFIZER INC-2013020174

PATIENT
  Age: 59 Year
  Sex: Female

DRUGS (2)
  1. CELEBREX [Suspect]
     Indication: FIBROMYALGIA
     Dosage: 200 MG, 1X/DAY
     Dates: start: 2004, end: 20041209
  2. ASPIRIN [Concomitant]
     Dosage: 325 MG, 1X/DAY

REACTIONS (1)
  - Ischaemic stroke [Recovering/Resolving]
